FAERS Safety Report 9644934 (Version 1)
Quarter: 2013Q4

REPORT INFORMATION
  Report Type: Spontaneous
  Country: US (occurrence: US)
  Receive Date: 20131025
  Receipt Date: 20131025
  Transmission Date: 20140711
  Serious: No
  Sender: FDA-Public Use
  Company Number: US-PFIZER INC-2013303170

PATIENT
  Age: 43 Year
  Sex: Female
  Weight: 65.76 kg

DRUGS (7)
  1. XELJANZ [Suspect]
     Indication: RHEUMATOID ARTHRITIS
     Dosage: 5 MG, 2X/DAY
     Route: 048
  2. MAGNESIUM [Concomitant]
     Dosage: 300 MG, UNK
  3. BIOTIN [Concomitant]
     Dosage: 1 MG, UNK
  4. FOLIC ACID [Concomitant]
     Dosage: UNK
  5. IBUPROFEN [Concomitant]
     Dosage: 200 MG, UNK
  6. TYLENOL [Concomitant]
     Dosage: 500 MG, UNK
  7. VITAMIN B12 [Concomitant]
     Dosage: 1000 UG, UNK

REACTIONS (2)
  - Abdominal pain upper [Recovered/Resolved]
  - Myalgia [Recovered/Resolved]
